FAERS Safety Report 11382049 (Version 1)
Quarter: 2015Q3

REPORT INFORMATION
  Report Type: Spontaneous
  Country: US (occurrence: US)
  Receive Date: 20150814
  Receipt Date: 20150814
  Transmission Date: 20151125
  Serious: No
  Sender: FDA-Public Use
  Company Number: PHEH2015US012508

PATIENT
  Sex: Female

DRUGS (1)
  1. EXELON PATCH [Suspect]
     Active Substance: RIVASTIGMINE
     Indication: PRODUCT USED FOR UNKNOWN INDICATION
     Dosage: 4.6 MG/24HOURS (09 MG DAILY RIVASTIGMINE BASE/ PATCH 5 (CM2)).
     Route: 062

REACTIONS (2)
  - Application site erythema [Not Recovered/Not Resolved]
  - Product adhesion issue [Not Recovered/Not Resolved]
